FAERS Safety Report 6722825-X (Version None)
Quarter: 2010Q2

REPORT INFORMATION
  Report Type: 
  Country: None (occurrence: None)
  Receive Date: 20100512
  Receipt Date: 20100512
  Transmission Date: 20101027
  Serious: Yes (Other)
  Sender: FDA-Public Use
  Company Number: None

PATIENT
  Age: 88 Year
  Sex: Female
  Weight: 69.9 kg

DRUGS (2)
  1. ZOSYN [Suspect]
     Indication: DIVERTICULITIS
     Dosage: 3.375 GRAMS EVERY 6 HOURS IV BOLUS; 3 DOSES
     Route: 040
     Dates: start: 19990505, end: 20100506
  2. ZOSYN [Suspect]
     Indication: INTESTINAL OBSTRUCTION
     Dosage: 3.375 GRAMS EVERY 6 HOURS IV BOLUS; 3 DOSES
     Route: 040
     Dates: start: 19990505, end: 20100506

REACTIONS (1)
  - PLATELET COUNT DECREASED [None]
